FAERS Safety Report 9840437 (Version 1)
Quarter: 2014Q1

REPORT INFORMATION
  Report Type: Spontaneous
  Country: US (occurrence: US)
  Receive Date: 20140124
  Receipt Date: 20140124
  Transmission Date: 20141002
  Serious: Yes (Hospitalization)
  Sender: FDA-Public Use
  Company Number: US-BAYER-2014-011803

PATIENT
  Age: 32 Year
  Sex: Female
  Weight: 115.19 kg

DRUGS (3)
  1. YASMIN [Suspect]
  2. PAXIL [Concomitant]
     Indication: ANXIETY
     Dosage: 20 MG, A DAY
     Route: 048
  3. LEXAPRO [Concomitant]
     Dosage: 10 MG, QD
     Route: 048

REACTIONS (1)
  - Pulmonary embolism [None]
